FAERS Safety Report 12710067 (Version 1)
Quarter: 2016Q3

REPORT INFORMATION
  Report Type: Report from Study
  Country: US (occurrence: US)
  Receive Date: 20160902
  Receipt Date: 20160902
  Transmission Date: 20161109
  Serious: Yes (Hospitalization)
  Sender: FDA-Public Use
  Company Number: US-AMGEN-USASL2016112433

PATIENT
  Age: 63 Year
  Sex: Male

DRUGS (1)
  1. ENBREL [Suspect]
     Active Substance: ETANERCEPT
     Indication: PSORIATIC ARTHROPATHY
     Dosage: 25 MG, 2 TIMES/WK
     Route: 065
     Dates: start: 20120416, end: 20160802

REACTIONS (7)
  - Drug effect incomplete [Unknown]
  - Atrial fibrillation [Unknown]
  - Pulmonary oedema [Recovering/Resolving]
  - Arrhythmia [Recovering/Resolving]
  - Blood pressure increased [Recovering/Resolving]
  - Psoriasis [Unknown]
  - Ventricular tachycardia [Recovering/Resolving]

NARRATIVE: CASE EVENT DATE: 201607
